FAERS Safety Report 21298612 (Version 1)
Quarter: 2022Q3

REPORT INFORMATION
  Report Type: Spontaneous
  Country: US (occurrence: None)
  Receive Date: 20220903
  Receipt Date: 20220903
  Transmission Date: 20221027
  Serious: Yes (Hospitalization)
  Sender: FDA-Public Use
  Company Number: None

PATIENT
  Age: 24 Year
  Sex: Female
  Weight: 50.8 kg

DRUGS (4)
  1. METHOTREXATE [Suspect]
     Active Substance: METHOTREXATE
     Dates: end: 20220803
  2. ONCASPAR [Suspect]
     Active Substance: PEGASPARGASE
     Dosage: OTHER QUANTITY : 2900 UNIT;?
     Dates: end: 20220721
  3. RITUXIMAB [Suspect]
     Active Substance: RITUXIMAB
     Dates: end: 20220720
  4. VINCRISTINE SULFATE [Suspect]
     Active Substance: VINCRISTINE SULFATE
     Dates: end: 20220803

REACTIONS (19)
  - Tachycardia [None]
  - Pyrexia [None]
  - Abdominal discomfort [None]
  - Leukopenia [None]
  - Colitis [None]
  - Haemoglobin decreased [None]
  - Platelet count decreased [None]
  - Sepsis [None]
  - Multiple organ dysfunction syndrome [None]
  - Blood urea decreased [None]
  - Blood sodium decreased [None]
  - Blood potassium decreased [None]
  - Blood calcium decreased [None]
  - Blood alkaline phosphatase increased [None]
  - Aspartate aminotransferase increased [None]
  - Alanine aminotransferase increased [None]
  - Haematocrit decreased [None]
  - Red blood cell count decreased [None]
  - Neutrophil count decreased [None]

NARRATIVE: CASE EVENT DATE: 20220808
